FAERS Safety Report 26086564 (Version 1)
Quarter: 2025Q4

REPORT INFORMATION
  Report Type: Report from Study
  Country: NZ (occurrence: NZ)
  Receive Date: 20251125
  Receipt Date: 20251125
  Transmission Date: 20260118
  Serious: Yes (Other)
  Sender: GILEAD
  Company Number: NZ-GILEAD-2025-0737889

PATIENT
  Age: 37 Year
  Sex: Female

DRUGS (1)
  1. SACITUZUMAB GOVITECAN-HZIY [Suspect]
     Active Substance: SACITUZUMAB GOVITECAN-HZIY
     Indication: Triple negative breast cancer
     Dosage: 690 MG
     Route: 065
     Dates: start: 202507, end: 202511

REACTIONS (1)
  - Disease progression [Unknown]
